FAERS Safety Report 6570771-7 (Version None)
Quarter: 2010Q1

REPORT INFORMATION
  Report Type: 
  Country: None (occurrence: None)
  Receive Date: 20100204
  Receipt Date: 20100125
  Transmission Date: 20100710
  Serious: Yes (Death)
  Sender: FDA-Public Use
  Company Number: US-WYE-H13139210

PATIENT
  Sex: Female

DRUGS (2)
  1. PANTOPRAZOLE [Suspect]
     Dosage: UNKNOWN
     Route: 065
  2. PROTONIX [Suspect]
     Dosage: UNKNOWN
     Route: 042

REACTIONS (2)
  - ACUTE HEPATIC FAILURE [None]
  - HEPATITIS CHOLESTATIC [None]
